FAERS Safety Report 12078057 (Version 1)
Quarter: 2016Q1

REPORT INFORMATION
  Report Type: Spontaneous
  Country: US (occurrence: US)
  Receive Date: 20160215
  Receipt Date: 20160215
  Transmission Date: 20160526
  Serious: No
  Sender: FDA-Public Use
  Company Number: US-BAXALTA-2016BLT000799

PATIENT
  Age: 59 Year
  Sex: Female

DRUGS (5)
  1. HYQVIA [Suspect]
     Active Substance: HUMAN IMMUNOGLOBULIN G\HYALURONIDASE RECOMBINANT HUMAN
     Dosage: THIRD INFUSION
     Route: 065
     Dates: start: 20160202, end: 20160202
  2. HYQVIA [Suspect]
     Active Substance: HUMAN IMMUNOGLOBULIN G\HYALURONIDASE RECOMBINANT HUMAN
     Dosage: 225 ML, SECOND RAMP UP
     Route: 065
  3. TYLENOL [Concomitant]
     Active Substance: ACETAMINOPHEN
     Indication: PREMEDICATION
     Dosage: UNK
     Route: 065
     Dates: start: 20160112, end: 20160112
  4. HYQVIA [Suspect]
     Active Substance: HUMAN IMMUNOGLOBULIN G\HYALURONIDASE RECOMBINANT HUMAN
     Indication: IMMUNODEFICIENCY COMMON VARIABLE
     Dosage: 25 ML, FIRST RAMP UP
     Route: 065
     Dates: start: 20160112, end: 20160112
  5. BENADRYL [Concomitant]
     Active Substance: DIPHENHYDRAMINE HYDROCHLORIDE
     Indication: PREMEDICATION
     Dosage: UNK
     Route: 065
     Dates: start: 20160112, end: 20160112

REACTIONS (6)
  - Headache [Not Recovered/Not Resolved]
  - Infusion site erythema [Unknown]
  - Infusion site pruritus [Unknown]
  - Injection site swelling [Unknown]
  - Somnolence [Unknown]
  - Photophobia [Unknown]

NARRATIVE: CASE EVENT DATE: 20160112
